FAERS Safety Report 16722355 (Version 9)
Quarter: 2020Q2

REPORT INFORMATION
  Report Type: Spontaneous
  Country: US (occurrence: US)
  Receive Date: 20190820
  Receipt Date: 20200407
  Transmission Date: 20200713
  Serious: Yes (Other)
  Sender: FDA-Public Use
  Company Number: US-009507513-1908USA007353

PATIENT
  Sex: Female
  Weight: 68.03 kg

DRUGS (1)
  1. NEXPLANON [Suspect]
     Active Substance: ETONOGESTREL
     Dosage: 1 IMPLANT
     Route: 059
     Dates: start: 2014

REACTIONS (8)
  - Complication associated with device [Recovered/Resolved]
  - Device breakage [Not Recovered/Not Resolved]
  - Discomfort [Unknown]
  - Incorrect product administration duration [Unknown]
  - Complication of device removal [Not Recovered/Not Resolved]
  - Menstruation irregular [Unknown]
  - Device dislocation [Not Recovered/Not Resolved]
  - Pain [Unknown]
